FAERS Safety Report 6499191-0 (Version None)
Quarter: 2009Q4

REPORT INFORMATION
  Report Type: 
  Country: None (occurrence: None)
  Receive Date: 20091215
  Receipt Date: 20091207
  Transmission Date: 20100525
  Serious: Yes (Hospitalization)
  Sender: FDA-Public Use
  Company Number: DE-SANOFI-AVENTIS-2009SA007547

PATIENT
  Age: 70 Year

DRUGS (6)
  1. OXALIPLATIN [Suspect]
     Indication: COLON CANCER
     Route: 041
     Dates: start: 20060710, end: 20060710
  2. CETUXIMAB [Suspect]
     Indication: COLON CANCER
     Route: 041
     Dates: start: 20060710, end: 20060710
  3. FLUOROURACIL [Suspect]
     Indication: COLON CANCER
     Dosage: DOSE:600 MILLIGRAM(S)/MILLILITRE
     Route: 041
     Dates: start: 20060710, end: 20060710
  4. FLUOROURACIL [Suspect]
     Dosage: DOSE:600 MILLIGRAM(S)/MILLILITRE
     Route: 041
     Dates: start: 20060711, end: 20060711
  5. FOLINIC ACID [Suspect]
     Indication: COLON CANCER
     Route: 041
     Dates: start: 20060710, end: 20060710
  6. FOLINIC ACID [Suspect]
     Route: 041
     Dates: start: 20060711, end: 20060711

REACTIONS (1)
  - ARTERIOSPASM CORONARY [None]
